FAERS Safety Report 8001341-1 (Version None)
Quarter: 2011Q4

REPORT INFORMATION
  Report Type: 
  Country: None (occurrence: None)
  Receive Date: 20111222
  Receipt Date: 20111214
  Transmission Date: 20120403
  Serious: Yes (Hospitalization)
  Sender: FDA-Public Use
  Company Number: US-BAYER-2011-051380

PATIENT
  Age: 29 Year
  Sex: Female
  Weight: 104 kg

DRUGS (3)
  1. YAZ [Suspect]
     Indication: PREMENSTRUAL SYNDROME
  2. YAZ [Suspect]
     Indication: CONTRACEPTION
     Dosage: UNK
     Dates: start: 20090427, end: 20090720
  3. YAZ [Suspect]
     Indication: ACNE

REACTIONS (10)
  - DYSPNOEA [None]
  - GENERAL PHYSICAL HEALTH DETERIORATION [None]
  - SLEEP DISORDER [None]
  - EMOTIONAL DISTRESS [None]
  - PULMONARY EMBOLISM [None]
  - PULMONARY INFARCTION [None]
  - INJURY [None]
  - PAIN [None]
  - ANXIETY [None]
  - CHEST PAIN [None]
